FAERS Safety Report 9713922 (Version 1)
Quarter: 2013Q4

REPORT INFORMATION
  Report Type: Spontaneous
  Country: US (occurrence: US)
  Receive Date: 20131126
  Receipt Date: 20131126
  Transmission Date: 20140711
  Serious: Yes (Hospitalization)
  Sender: FDA-Public Use
  Company Number: US-B.I. PHARMACEUTICALS,INC./RIDGEFIELD-2013-BI-38391BP

PATIENT
  Age: 67 Year
  Sex: Female
  Weight: 86 kg

DRUGS (5)
  1. SPIRIVA [Suspect]
     Indication: CHRONIC OBSTRUCTIVE PULMONARY DISEASE
     Dosage: 18 MCG
     Route: 055
     Dates: start: 2008
  2. CYMBALTA [Concomitant]
     Indication: FIBROMYALGIA
  3. ASPIRIN [Concomitant]
     Dosage: 81 MG
     Route: 048
  4. SINGULAIR [Concomitant]
     Indication: CHRONIC OBSTRUCTIVE PULMONARY DISEASE
  5. CLONAZEPAM [Concomitant]
     Indication: NERVE INJURY
     Dosage: 3 MG
     Route: 048
     Dates: start: 2003

REACTIONS (5)
  - Cardiac failure congestive [Recovered/Resolved]
  - Intestinal haemorrhage [Recovered/Resolved]
  - Diverticulum [Recovered/Resolved]
  - Wheezing [Not Recovered/Not Resolved]
  - Upper respiratory tract infection [Not Recovered/Not Resolved]
